FAERS Safety Report 4919655-8 (Version None)
Quarter: 2006Q1

REPORT INFORMATION
  Report Type: 
  Country: None (occurrence: None)
  Receive Date: 20060216
  Receipt Date: 20060213
  Transmission Date: 20060701
  Serious: No
  Sender: FDA-Public Use
  Company Number: ZONI002266

PATIENT

DRUGS (3)
  1. ZONEGRAN [Suspect]
     Indication: EPILEPSY
     Dosage: 100 MG, 2 IN 1 D, ORAL
     Route: 048
     Dates: start: 20051205, end: 20060101
  2. TRILEPTAL [Suspect]
     Dosage: 1200 MG, 2 IN 1 D, ORAL
     Route: 048
  3. KEPPRA [Suspect]
     Dosage: 3000 MG, 2 IN 1 D, ORAL
     Route: 048

REACTIONS (2)
  - DRUG INTERACTION [None]
  - GRAND MAL CONVULSION [None]
